FAERS Safety Report 4319318-6 (Version None)
Quarter: 2004Q1

REPORT INFORMATION
  Report Type: 
  Country: None (occurrence: None)
  Receive Date: 20040316
  Receipt Date: 20040302
  Transmission Date: 20041129
  Serious: Yes (Other)
  Sender: FDA-Public Use
  Company Number: 2004202219IN

PATIENT
  Age: 4 Year
  Sex: Male

DRUGS (2)
  1. HEPARIN SODIUM [Suspect]
  2. ASPIRIN [Concomitant]

REACTIONS (7)
  - ALBUMIN URINE PRESENT [None]
  - BLOOD CREATININE INCREASED [None]
  - BLOOD UREA INCREASED [None]
  - HAEMOGLOBIN DECREASED [None]
  - HAEMOGLOBINURIA [None]
  - HAEMOLYSIS [None]
  - THROMBOCYTOPENIA [None]
